FAERS Safety Report 24756710 (Version 2)
Quarter: 2025Q1

REPORT INFORMATION
  Report Type: Spontaneous
  Country: US (occurrence: US)
  Receive Date: 20241220
  Receipt Date: 20250110
  Transmission Date: 20250409
  Serious: No
  Sender: Haleon PLC
  Company Number: US-HALEON-2216528

PATIENT
  Sex: Female

DRUGS (2)
  1. ABREVA [Suspect]
     Active Substance: DOCOSANOL
     Indication: Oral herpes
     Dates: start: 20241213, end: 20241215
  2. ABREVA [Suspect]
     Active Substance: DOCOSANOL

REACTIONS (2)
  - Circumstance or information capable of leading to medication error [Unknown]
  - Product complaint [Unknown]
